FAERS Safety Report 7966280-0 (Version None)
Quarter: 2011Q4

REPORT INFORMATION
  Report Type: 
  Country: None (occurrence: None)
  Receive Date: 20111208
  Receipt Date: 20111201
  Transmission Date: 20120403
  Serious: Yes (Hospitalization)
  Sender: FDA-Public Use
  Company Number: GB-ABBOTT-11P-167-0846424-00

PATIENT
  Sex: Male
  Weight: 84 kg

DRUGS (10)
  1. HUMIRA [Suspect]
     Route: 058
     Dates: start: 20110329, end: 20110620
  2. METHOTREXATE [Concomitant]
  3. ONDANSETRON [Concomitant]
     Indication: PRODUCT USED FOR UNKNOWN INDICATION
     Dates: start: 20110317
  4. METHOTREXATE [Concomitant]
  5. METHOTREXATE [Concomitant]
     Indication: PRODUCT USED FOR UNKNOWN INDICATION
  6. NEXIUM [Concomitant]
     Indication: PRODUCT USED FOR UNKNOWN INDICATION
     Dates: start: 20040201
  7. FLOXACILLIN SODIUM [Concomitant]
     Indication: PRODUCT USED FOR UNKNOWN INDICATION
     Dates: start: 20110606, end: 20110613
  8. HUMIRA [Suspect]
     Indication: PSORIASIS
     Route: 058
     Dates: start: 20100110, end: 20110328
  9. FOLIC ACID [Concomitant]
     Indication: PRODUCT USED FOR UNKNOWN INDICATION
     Dates: start: 20101012
  10. CHLORAMPHENICOL [Concomitant]
     Indication: PRODUCT USED FOR UNKNOWN INDICATION
     Dates: start: 20110620, end: 20110627

REACTIONS (3)
  - ERYTHRODERMIC PSORIASIS [None]
  - PSORIASIS [None]
  - DEPRESSED MOOD [None]
